FAERS Safety Report 8915407 (Version 1)
Quarter: 2012Q4

REPORT INFORMATION
  Report Type: 
  Country: US (occurrence: US)
  Receive Date: 20121119
  Receipt Date: 20121119
  Transmission Date: 20130627
  Serious: No
  Sender: FDA-Public Use
  Company Number: US-PFIZER INC-2012288099

PATIENT
  Age: 56 Year
  Sex: Male
  Weight: 74.83 kg

DRUGS (5)
  1. LYRICA [Suspect]
     Indication: SCIATIC NEURALGIA
     Dosage: 50 mg, daily
     Dates: start: 201209
  2. LYRICA [Suspect]
     Indication: BACK DISORDER
     Dosage: 100 mg, daily
     Dates: start: 2012
  3. LYRICA [Suspect]
     Dosage: 200 mg, daily
     Dates: start: 2012
  4. LYRICA [Suspect]
     Dosage: UNK, daily
     Dates: start: 2012
  5. LYRICA [Suspect]
     Dosage: 200 mg, 1x/day
     Dates: start: 2012

REACTIONS (1)
  - Arthralgia [Not Recovered/Not Resolved]
